FAERS Safety Report 9680269 (Version 2)
Quarter: 2013Q4

REPORT INFORMATION
  Report Type: Report from Study
  Country: US (occurrence: US)
  Receive Date: 20131111
  Receipt Date: 20131111
  Transmission Date: 20140711
  Serious: Yes (Death, Hospitalization, Other)
  Sender: FDA-Public Use
  Company Number: US-BRISTOL-MYERS SQUIBB COMPANY-14256820

PATIENT
  Age: 82 Year
  Sex: Male

DRUGS (1)
  1. IPILIMUMAB [Suspect]
     Indication: MALIGNANT MELANOMA
     Dosage: THERAPY STARTED ON 28APR08
     Route: 042
     Dates: start: 20080702, end: 20080702

REACTIONS (5)
  - Infection [Fatal]
  - Large intestine perforation [Not Recovered/Not Resolved]
  - Colitis [Unknown]
  - Malignant neoplasm progression [Not Recovered/Not Resolved]
  - Hypotension [Recovered/Resolved with Sequelae]
